FAERS Safety Report 21225534 (Version 2)
Quarter: 2022Q4

REPORT INFORMATION
  Report Type: Spontaneous
  Country: US (occurrence: US)
  Receive Date: 20220818
  Receipt Date: 20221021
  Transmission Date: 20230113
  Serious: Yes (Other)
  Sender: FDA-Public Use
  Company Number: US-BRISTOL-MYERS SQUIBB COMPANY-163-20785-12092766

PATIENT
  Age: 22 Year
  Sex: Female

DRUGS (1)
  1. THALOMID [Suspect]
     Active Substance: THALIDOMIDE
     Indication: Product used for unknown indication
     Dosage: FREQUENCY TEXT: HS?DRUG TAKEN BY MALE PARTNER ORALLY
     Route: 050
     Dates: start: 20111118, end: 20120917

REACTIONS (2)
  - Exposure via body fluid [Unknown]
  - Live birth [Unknown]
